FAERS Safety Report 4668753-5 (Version None)
Quarter: 2005Q2

REPORT INFORMATION
  Report Type: 
  Country: None (occurrence: None)
  Receive Date: 20050519
  Receipt Date: 20050506
  Transmission Date: 20051028
  Serious: Yes (Hospitalization, Disabling, Other)
  Sender: FDA-Public Use
  Company Number: 2005071561

PATIENT
  Age: 66 Year
  Sex: Male
  Weight: 124.7392 kg

DRUGS (19)
  1. BEXTRA [Suspect]
     Indication: ILL-DEFINED DISORDER
     Dosage: (10 MG)
     Dates: start: 20030601, end: 20050401
  2. AMARYL [Concomitant]
  3. NEURONTIN [Concomitant]
  4. PLAVIX [Concomitant]
  5. PROPON/APAP (ALL OTHER THERAPEUTIC PRODUCTS) [Concomitant]
  6. LASIX [Concomitant]
  7. DIOVAN [Concomitant]
  8. TOPROL (METOPROLOL) [Concomitant]
  9. PREVACID [Concomitant]
  10. MOBIC [Concomitant]
  11. ^ANTARA^ (DEXTROPROPDXYPHENE HYDROCHLORIDE) [Concomitant]
  12. ACTOS [Concomitant]
  13. WELLBUTRIN [Concomitant]
  14. ASPIRIN [Concomitant]
  15. HYDRALAZINE HCL [Concomitant]
  16. ALBUTEROL [Concomitant]
  17. BUDESONIDE [Concomitant]
  18. NITROGLYCERIN [Concomitant]
  19. OXYGEN (OXYGEN) [Concomitant]

REACTIONS (7)
  - BLOOD CHOLESTEROL INCREASED [None]
  - CARDIAC DISORDER [None]
  - CEREBROVASCULAR ACCIDENT [None]
  - DIFFICULTY IN WALKING [None]
  - LOCALISED INFECTION [None]
  - THROMBOSIS [None]
  - WEIGHT INCREASED [None]
